FAERS Safety Report 12222114 (Version 1)
Quarter: 2016Q1

REPORT INFORMATION
  Report Type: Spontaneous
  Country: US (occurrence: US)
  Receive Date: 20160330
  Receipt Date: 20160330
  Transmission Date: 20160526
  Serious: No
  Sender: FDA-Public Use
  Company Number: US-PFIZER INC-2016133839

PATIENT
  Sex: Female

DRUGS (8)
  1. DARVOCET A500 [Suspect]
     Active Substance: ACETAMINOPHEN\PROPOXYPHENE NAPSYLATE
  2. TALWIN [Suspect]
     Active Substance: PENTAZOCINE LACTATE
  3. DILAUDID [Suspect]
     Active Substance: HYDROMORPHONE HYDROCHLORIDE
  4. BETADINE [Suspect]
     Active Substance: POVIDONE-IODINE
  5. PROCARDIA [Suspect]
     Active Substance: NIFEDIPINE
  6. LEXISCAN [Suspect]
     Active Substance: REGADENOSON
  7. BACTRIM [Suspect]
     Active Substance: SULFAMETHOXAZOLE\TRIMETHOPRIM
     Dosage: UNK
  8. NITRO [Suspect]
     Active Substance: NITROGLYCERIN
     Dosage: UNK

REACTIONS (1)
  - Drug hypersensitivity [Unknown]
